FAERS Safety Report 9307928 (Version 1)
Quarter: 2013Q2

REPORT INFORMATION
  Report Type: Spontaneous
  Country: DE (occurrence: DE)
  Receive Date: 20130524
  Receipt Date: 20130524
  Transmission Date: 20140414
  Serious: Yes (Hospitalization, Other)
  Sender: FDA-Public Use
  Company Number: PHHY2013DE039426

PATIENT
  Sex: 0

DRUGS (1)
  1. AFINITOR [Suspect]
     Indication: PANCREATIC NEUROENDOCRINE TUMOUR
     Dosage: UNK
     Route: 048
     Dates: start: 201301

REACTIONS (16)
  - General physical health deterioration [Unknown]
  - Lymphangiosis carcinomatosa [Unknown]
  - Mucosal inflammation [Unknown]
  - Mouth ulceration [Unknown]
  - Pyrexia [Unknown]
  - Abdominal pain [Unknown]
  - Diarrhoea [Unknown]
  - Protein deficiency [Unknown]
  - Generalised oedema [Unknown]
  - Circulatory collapse [Unknown]
  - Oedema peripheral [Unknown]
  - Ascites [Unknown]
  - Pleural effusion [Unknown]
  - Herpes simplex [Unknown]
  - Hyperglycaemia [Unknown]
  - Pneumonia [Unknown]
